FAERS Safety Report 13881526 (Version 1)
Quarter: 2017Q3

REPORT INFORMATION
  Report Type: Spontaneous
  Country: US (occurrence: US)
  Receive Date: 20170818
  Receipt Date: 20170818
  Transmission Date: 20171127
  Serious: No
  Sender: FDA-Public Use
  Company Number: US-PFIZER INC-2017356931

PATIENT
  Age: 16 Year
  Sex: Male

DRUGS (1)
  1. ADVIL [Suspect]
     Active Substance: IBUPROFEN
     Indication: INFLAMMATION
     Dosage: 2 ADVIL TABLETS

REACTIONS (3)
  - Eye swelling [Unknown]
  - Eye disorder [Unknown]
  - Intentional product misuse [Unknown]

NARRATIVE: CASE EVENT DATE: 20170815
